FAERS Safety Report 7973486-3 (Version None)
Quarter: 2011Q4

REPORT INFORMATION
  Report Type: 
  Country: None (occurrence: None)
  Receive Date: 20111122
  Receipt Date: 20110719
  Transmission Date: 20120403
  Serious: No
  Sender: FDA-Public Use
  Company Number: PHHY2011US20235

PATIENT
  Age: 58 Year
  Sex: Male

DRUGS (2)
  1. ANTIHYPERTENSIVE DRUGS (NO INGREDIENTS/SUBSTANCES) [Concomitant]
  2. GILENYA [Suspect]
     Indication: MULTIPLE SCLEROSIS
     Dosage: 0.5 MG, QD, ORAL
     Route: 048
     Dates: start: 20110304

REACTIONS (3)
  - CHEST PAIN [None]
  - VISUAL IMPAIRMENT [None]
  - VITREOUS FLOATERS [None]
